FAERS Safety Report 5316902-8 (Version None)
Quarter: 2007Q2

REPORT INFORMATION
  Report Type: 
  Country: None (occurrence: None)
  Receive Date: 20070504
  Receipt Date: 20070426
  Transmission Date: 20071010
  Serious: Yes (Hospitalization)
  Sender: FDA-Public Use
  Company Number: ES-GLAXOSMITHKLINE-B0467887A

PATIENT
  Age: 74 Year
  Sex: Female
  Weight: 92 kg

DRUGS (5)
  1. FORTAM [Suspect]
     Indication: SEPTIC SHOCK
     Dosage: 1G THREE TIMES PER DAY
     Route: 042
     Dates: start: 20070406, end: 20070411
  2. FLAGYL [Suspect]
     Indication: SEPTIC SHOCK
     Dosage: 500MG THREE TIMES PER DAY
     Route: 042
     Dates: start: 20070406, end: 20070411
  3. TEICOPLANIN [Suspect]
     Indication: SEPTIC SHOCK
     Dosage: 400MG PER DAY
     Route: 042
     Dates: start: 20070324, end: 20070411
  4. CASPOFUNGIN [Suspect]
     Indication: SEPTIC SHOCK
     Dosage: 50MG PER DAY
     Route: 042
     Dates: start: 20070325, end: 20070411
  5. INSULIN [Concomitant]

REACTIONS (9)
  - ALANINE AMINOTRANSFERASE INCREASED [None]
  - ASPARTATE AMINOTRANSFERASE INCREASED [None]
  - BLOOD ALKALINE PHOSPHATASE INCREASED [None]
  - BLOOD LACTATE DEHYDROGENASE INCREASED [None]
  - CONFUSIONAL STATE [None]
  - GAMMA-GLUTAMYLTRANSFERASE INCREASED [None]
  - HEPATIC ENZYME INCREASED [None]
  - HEPATITIS TOXIC [None]
  - PROTEIN TOTAL DECREASED [None]
